FAERS Safety Report 20559830 (Version 2)
Quarter: 2022Q3

REPORT INFORMATION
  Report Type: Report from Study
  Country: IN (occurrence: IN)
  Receive Date: 20220307
  Receipt Date: 20220919
  Transmission Date: 20221026
  Serious: Yes (Hospitalization, Other)
  Sender: FDA-Public Use
  Company Number: IN-NOVARTISPH-NVSC2022IN052236

PATIENT
  Age: 49 Year
  Sex: Male

DRUGS (2)
  1. MIDOSTAURIN [Suspect]
     Active Substance: MIDOSTAURIN
     Indication: Acute myeloid leukaemia
     Dosage: 50 MG, BID
     Route: 065
     Dates: start: 202111, end: 202209
  2. MIDOSTAURIN [Suspect]
     Active Substance: MIDOSTAURIN
     Dosage: 50 MG, BID
     Route: 065
     Dates: start: 202202

REACTIONS (3)
  - Acute myeloid leukaemia recurrent [Not Recovered/Not Resolved]
  - Myelosuppression [Recovered/Resolved]
  - Full blood count decreased [Recovered/Resolved]

NARRATIVE: CASE EVENT DATE: 20220101
